FAERS Safety Report 5466675-3 (Version None)
Quarter: 2007Q3

REPORT INFORMATION
  Report Type: 
  Country: None (occurrence: None)
  Receive Date: 20070924
  Receipt Date: 20070924
  Transmission Date: 20080115
  Serious: Yes (Other)
  Sender: FDA-Public Use
  Company Number: None

PATIENT
  Age: 48 Year
  Sex: Male

DRUGS (3)
  1. COMBIVIR [Suspect]
     Dosage: 150/300 MG BID PO
     Route: 048
     Dates: start: 20060425, end: 20060525
  2. NELFINAVIR [Suspect]
     Dosage: 1000 MG BID PO
     Route: 048
     Dates: start: 20060425, end: 20060525
  3. CITALOPRAM HYDROBROMIDE [Concomitant]

REACTIONS (2)
  - HEPATIC ENZYME INCREASED [None]
  - LIVER DISORDER [None]
